FAERS Safety Report 10220111 (Version 1)
Quarter: 2014Q2

REPORT INFORMATION
  Report Type: Spontaneous
  Country: DE (occurrence: DE)
  Receive Date: 20140605
  Receipt Date: 20140605
  Transmission Date: 20141212
  Serious: Yes (Other)
  Sender: FDA-Public Use
  Company Number: PHHY2014DE067020

PATIENT
  Age: 34 Year
  Sex: Female

DRUGS (4)
  1. INDOMETHACIN [Suspect]
     Indication: HEADACHE
     Dosage: 50 MG, TID
  2. INDOMETHACIN [Suspect]
     Dosage: 75 MG, TID
  3. INDOMETHACIN [Suspect]
     Dosage: 150 MG, UNK
  4. INDOMETHACIN [Suspect]
     Dosage: 225 MG, UNK

REACTIONS (4)
  - Migraine [Recovered/Resolved]
  - Headache [Recovered/Resolved]
  - Photophobia [Recovered/Resolved]
  - Phonophobia [Recovered/Resolved]
